FAERS Safety Report 6258403-9 (Version None)
Quarter: 2009Q3

REPORT INFORMATION
  Report Type: 
  Country: None (occurrence: None)
  Receive Date: 20090707
  Receipt Date: 20090625
  Transmission Date: 20100115
  Serious: Yes (Hospitalization)
  Sender: FDA-Public Use
  Company Number: FR-PFIZER INC-2009231858

PATIENT
  Age: 51 Year

DRUGS (8)
  1. TRIFLUCAN [Suspect]
     Dosage: UNK
     Route: 048
     Dates: start: 20090408, end: 20090410
  2. BIRODOGYL [Suspect]
     Indication: TOOTH ABSCESS
     Dosage: 2 DF, 2X/DAY
     Route: 048
     Dates: start: 20090401, end: 20090403
  3. AUGMENTIN [Suspect]
     Dosage: 1 G, 3X/DAY
     Dates: start: 20090407, end: 20090410
  4. FUCIDINE CAP [Suspect]
     Indication: SKIN LESION
     Dosage: 1 DF, 1X/DAY
     Route: 061
     Dates: start: 20090401, end: 20090407
  5. LACTEOL [Suspect]
     Dosage: UNK
     Route: 048
     Dates: start: 20090408, end: 20090410
  6. ULTRA-LEVURE [Suspect]
     Dosage: 50 MG, UNK
     Dates: start: 20090408, end: 20090410
  7. COAPROVEL [Concomitant]
  8. FIV-ASA [Concomitant]

REACTIONS (3)
  - HYPERTHERMIA [None]
  - LEUKOPENIA [None]
  - NEUTROPENIA [None]
